FAERS Safety Report 7750194-5 (Version None)
Quarter: 2011Q3

REPORT INFORMATION
  Report Type: 
  Country: None (occurrence: None)
  Receive Date: 20110914
  Receipt Date: 20110914
  Transmission Date: 20111222
  Serious: Yes (Hospitalization, Other)
  Sender: FDA-Public Use
  Company Number: None

PATIENT
  Age: 25 Year
  Sex: Female
  Weight: 83.914 kg

DRUGS (1)
  1. MIRENA [Suspect]
     Indication: CONTRACEPTION
     Dates: start: 20100901, end: 20110908

REACTIONS (12)
  - PELVIC PAIN [None]
  - BACK PAIN [None]
  - ABORTION SPONTANEOUS [None]
  - ABDOMINAL PAIN [None]
  - MATERNAL EXPOSURE DURING PREGNANCY [None]
  - OVARIAN CYST [None]
  - PREGNANCY WITH CONTRACEPTIVE DEVICE [None]
  - VAGINAL HAEMORRHAGE [None]
  - DEVICE DISLOCATION [None]
  - VULVOVAGINAL PAIN [None]
  - SYNCOPE [None]
  - UTERINE MALPOSITION [None]
